FAERS Safety Report 6986614-3 (Version None)
Quarter: 2010Q3

REPORT INFORMATION
  Report Type: 
  Country: None (occurrence: None)
  Receive Date: 20100827
  Receipt Date: 20100119
  Transmission Date: 20110219
  Serious: Yes (Other)
  Sender: FDA-Public Use
  Company Number: AMAG201000038

PATIENT
  Age: 64 Year
  Sex: Female
  Weight: 76.6 kg

DRUGS (12)
  1. FERAHEME [Suspect]
     Indication: IRON DEFICIENCY ANAEMIA
     Dosage: 510 MG, SINGLE, INTRAVENOUS
     Route: 042
     Dates: start: 20091109, end: 20091109
  2. FERAHEME [Suspect]
     Indication: IRON DEFICIENCY ANAEMIA
     Dosage: 510 MG, SINGLE, INTRAVENOUS
     Route: 042
     Dates: start: 20091207, end: 20091207
  3. COREG [Concomitant]
  4. VITAMIN B COMPLEX (VITAMIN-B-KOMPLEX STANDARD) [Concomitant]
  5. CELEBREX [Concomitant]
  6. CATAPRES [Concomitant]
  7. DIOVAN [Concomitant]
  8. LASIX [Concomitant]
  9. GLIPIZIDE (GLIPISIDE) [Concomitant]
  10. PLAQUENIL [Concomitant]
  11. LOVAZA [Concomitant]
  12. PRILOSEC (OMEPRAZOLE) [Concomitant]

REACTIONS (2)
  - FLUSHING [None]
  - HYPERTENSION [None]
